FAERS Safety Report 8387291-X (Version None)
Quarter: 2012Q2

REPORT INFORMATION
  Report Type: 
  Country: None (occurrence: None)
  Receive Date: 20120525
  Receipt Date: 20120514
  Transmission Date: 20120825
  Serious: Yes (Hospitalization)
  Sender: FDA-Public Use
  Company Number: US-ROCHE-1069214

PATIENT
  Sex: Male

DRUGS (14)
  1. PEGASYS [Suspect]
     Indication: HEPATITIS C
     Route: 058
     Dates: start: 20120124
  2. TRUVADA [Concomitant]
     Dates: start: 20051027, end: 20120402
  3. PRAVASTATIN [Concomitant]
     Dates: start: 20070818
  4. COPEGUS [Suspect]
     Indication: HEPATITIS C
     Route: 048
     Dates: start: 20120124
  5. ATAZANAVIR [Concomitant]
     Dates: start: 20111221, end: 20120402
  6. LORAZEPAM [Concomitant]
     Dates: start: 20120207
  7. TRIAMCINOLONE [Concomitant]
     Dates: start: 20120306
  8. LEVOTHYROXINE SODIUM [Concomitant]
     Dates: start: 20090218
  9. DACLATASVIR [Suspect]
     Indication: HEPATITIS C
     Route: 048
  10. EPOGEN [Concomitant]
     Dates: start: 20120224
  11. RITONAVIR [Concomitant]
     Dates: start: 20111221, end: 20120402
  12. LOPERAMIDE HCL [Concomitant]
     Dates: start: 20120221
  13. VITAMIN D [Concomitant]
     Dates: start: 20110114
  14. NABUMETONE [Concomitant]
     Dates: start: 20110114

REACTIONS (2)
  - CHOLECYSTITIS [None]
  - PANCREATITIS ACUTE [None]
